FAERS Safety Report 14240800 (Version 1)
Quarter: 2017Q4

REPORT INFORMATION
  Report Type: Report from Study
  Country: US (occurrence: US)
  Receive Date: 20171130
  Receipt Date: 20171130
  Transmission Date: 20180321
  Serious: Yes (Other)
  Sender: FDA-Public Use
  Company Number: US-MALLINCKRODT-T201704440

PATIENT
  Sex: Female
  Weight: 108 kg

DRUGS (2)
  1. REPOSITORY CORTICOTROPIN INJECTION [Suspect]
     Active Substance: CORTICOTROPIN
     Indication: OCULAR PEMPHIGOID
     Dosage: 80 UNITS/ML, TWICE A WEEK
     Route: 030
  2. GABAPENTIN. [Concomitant]
     Active Substance: GABAPENTIN
     Indication: NEUROPATHY PERIPHERAL
     Dosage: 80 UNITS/ML, TWICE A WEEK
     Route: 030

REACTIONS (14)
  - Apparent death [Unknown]
  - Depression [Unknown]
  - Hypersomnia [Unknown]
  - Alopecia [Unknown]
  - Insomnia [Unknown]
  - Weight increased [Unknown]
  - Eating disorder [Unknown]
  - Dry skin [Unknown]
  - Swelling face [Unknown]
  - Peripheral swelling [Unknown]
  - Fluid retention [Not Recovered/Not Resolved]
  - Fatigue [Unknown]
  - Dizziness [Unknown]
  - Rash [Unknown]
